FAERS Safety Report 4903523-1 (Version None)
Quarter: 2006Q1

REPORT INFORMATION
  Report Type: 
  Country: None (occurrence: None)
  Receive Date: 20060203
  Receipt Date: 20060122
  Transmission Date: 20060701
  Serious: Yes (Hospitalization, Other)
  Sender: FDA-Public Use
  Company Number: HQWYE492824JAN06

PATIENT
  Sex: Male

DRUGS (4)
  1. VENLAFAXINE HCL [Suspect]
     Dosage: 300 MG 1X PER 1 DAY
  2. CLOZAPINE [Suspect]
     Dates: end: 20051108
  3. LITHIUM CARBONATE [Concomitant]
  4. PANTOLOC (PANTOPRAZOLE) [Concomitant]

REACTIONS (2)
  - APNOEA [None]
  - CONVULSION [None]
